FAERS Safety Report 21789137 (Version 1)
Quarter: 2022Q4

REPORT INFORMATION
  Report Type: Spontaneous
  Country: US (occurrence: None)
  Receive Date: 20221227
  Receipt Date: 20221227
  Transmission Date: 20230113
  Serious: No
  Sender: FDA-Public Use
  Company Number: None

PATIENT
  Age: 61 Year
  Sex: Female
  Weight: 63.9 kg

DRUGS (2)
  1. POLYMYXIN B SULFATE AND TRIMETHOPRIM [Suspect]
     Active Substance: POLYMYXIN B SULFATE\TRIMETHOPRIM SULFATE
     Indication: Conjunctivitis
     Dosage: FREQUENCY : EVERY 3 HOURS;?
     Route: 047
     Dates: start: 20221219, end: 20221222
  2. LEVOTHYROXINE [Concomitant]
     Active Substance: LEVOTHYROXINE

REACTIONS (4)
  - Eyelid oedema [None]
  - Eye pruritus [None]
  - Eye irritation [None]
  - Lacrimation increased [None]

NARRATIVE: CASE EVENT DATE: 20221221
